FAERS Safety Report 22135788 (Version 3)
Quarter: 2024Q4

REPORT INFORMATION
  Report Type: Report from Study
  Country: DE (occurrence: DE)
  Receive Date: 20230324
  Receipt Date: 20241112
  Transmission Date: 20250115
  Serious: Yes (Other)
  Sender: NOVARTIS
  Company Number: DE-002147023-NVSC2023DE063545

PATIENT
  Age: 33 Year
  Sex: Female
  Weight: 70.4 kg

DRUGS (5)
  1. ILARIS [Suspect]
     Active Substance: CANAKINUMAB
     Indication: Product used for unknown indication
     Dosage: 150 MG
     Route: 058
     Dates: start: 20190224
  2. ILARIS [Suspect]
     Active Substance: CANAKINUMAB
     Dosage: 150 MG (LATEST APPLICATION)
     Route: 058
     Dates: start: 20230223
  3. ILARIS [Suspect]
     Active Substance: CANAKINUMAB
     Dosage: 150 MG, EVERY 10 - 12 DAYS
     Route: 065
  4. IBUPROFEN [Suspect]
     Active Substance: IBUPROFEN
     Indication: Tumour necrosis factor receptor-associated periodic syndrome
     Dosage: 800 MG, TID
     Route: 048
     Dates: start: 201804
  5. PREDNISOLONE [Suspect]
     Active Substance: PREDNISOLONE
     Indication: Product used for unknown indication
     Dosage: 150 MG (ON REAL DEMAND)
     Route: 065
     Dates: start: 201804

REACTIONS (2)
  - Leukopenia [Not Recovered/Not Resolved]
  - Neutropenia [Not Recovered/Not Resolved]

NARRATIVE: CASE EVENT DATE: 20230301
